FAERS Safety Report 18920056 (Version 1)
Quarter: 2021Q1

REPORT INFORMATION
  Report Type: Spontaneous
  Country: CA (occurrence: CA)
  Receive Date: 20210222
  Receipt Date: 20210222
  Transmission Date: 20210420
  Serious: Yes (Life-Threatening, Hospitalization)
  Sender: FDA-Public Use
  Company Number: CA-TEVA-2021-CA-1880992

PATIENT
  Age: 4 Year
  Sex: Female
  Weight: 14 kg

DRUGS (10)
  1. SEPTRA [Concomitant]
     Active Substance: SULFAMETHOXAZOLE\TRIMETHOPRIM
  2. CISPLATIN INJECTION [Concomitant]
     Active Substance: CISPLATIN
  3. ETOPOSIDE. [Suspect]
     Active Substance: ETOPOSIDE
     Indication: CENTRAL NERVOUS SYSTEM NEOPLASM
     Dosage: 36 MILLIGRAM DAILY;
     Route: 042
  4. OMEPRAZOLE. [Concomitant]
     Active Substance: OMEPRAZOLE
  5. GRANULOCYTE COLONY STIMULATING FACTOR (G?CSF) [Concomitant]
     Active Substance: GRANULOCYTE COLONY-STIMULATING FACTOR NOS
  6. CYCLOPHOSPHAMIDE. [Suspect]
     Active Substance: CYCLOPHOSPHAMIDE
     Dosage: 880 MILLIGRAM DAILY;
     Route: 042
  7. DOMPERIDONE [Concomitant]
     Active Substance: DOMPERIDONE
  8. ONDANSETRON [Concomitant]
     Active Substance: ONDANSETRON
  9. PEGLYTE NOS [Concomitant]
     Active Substance: POLYETHYLENE GLYCOL 3350\POTASSIUM CHLORIDE\SODIUM BICARBONATE\SODIUM CHLORIDE\SODIUM SULFATE
  10. VINCRISTINE SULFATE. [Concomitant]
     Active Substance: VINCRISTINE SULFATE

REACTIONS (1)
  - Febrile neutropenia [Recovering/Resolving]
